FAERS Safety Report 24714126 (Version 1)
Quarter: 2024Q4

REPORT INFORMATION
  Report Type: Spontaneous
  Country: US (occurrence: US)
  Receive Date: 20241209
  Receipt Date: 20241209
  Transmission Date: 20250114
  Serious: No
  Sender: REGENERON
  Company Number: US-REGENERON PHARMACEUTICALS, INC.-2024-127904

PATIENT
  Age: 81 Year
  Sex: Male

DRUGS (4)
  1. EYLEA [Suspect]
     Active Substance: AFLIBERCEPT
     Indication: Neovascular age-related macular degeneration
     Dosage: UNK, FORMULATION: UNKNOWN
     Route: 031
     Dates: start: 2015
  2. EYLEA [Suspect]
     Active Substance: AFLIBERCEPT
     Dosage: UNK, FORMULATION: UNKNOWN
     Route: 031
     Dates: start: 20231107, end: 20231107
  3. EYLEA [Suspect]
     Active Substance: AFLIBERCEPT
     Dosage: UNK, FORMULATION: UNKNOWN
     Route: 031
     Dates: start: 20240103, end: 20240103
  4. EYLEA [Suspect]
     Active Substance: AFLIBERCEPT
     Dosage: UNK, FORMULATION: UNKNOWN
     Route: 031
     Dates: start: 20240305, end: 20240305

REACTIONS (1)
  - Drug effect less than expected [Unknown]
